FAERS Safety Report 7927212-4 (Version None)
Quarter: 2011Q4

REPORT INFORMATION
  Report Type: 
  Country: None (occurrence: None)
  Receive Date: 20111118
  Receipt Date: 20111109
  Transmission Date: 20120403
  Serious: Yes (Hospitalization, Other)
  Sender: FDA-Public Use
  Company Number: US-BAYER-200938048NA

PATIENT
  Age: 32 Year
  Sex: Female
  Weight: 74.376 kg

DRUGS (8)
  1. YASMIN [Suspect]
     Indication: MENORRHAGIA
  2. LEXAPRO [Concomitant]
     Indication: DEPRESSION
     Dosage: UNK
     Dates: start: 20071201, end: 20080101
  3. YASMIN [Suspect]
     Indication: PREMENSTRUAL SYNDROME
  4. IBUPROFEN [Concomitant]
  5. THEOPHYLLINE [Concomitant]
  6. LISINOPRIL [Concomitant]
  7. YASMIN [Suspect]
     Indication: MENSTRUATION IRREGULAR
  8. YASMIN [Suspect]
     Indication: CONTRACEPTION
     Dosage: UNK
     Dates: start: 20070501, end: 20080101

REACTIONS (3)
  - DEEP VEIN THROMBOSIS [None]
  - DEPRESSION [None]
  - PULMONARY EMBOLISM [None]
